FAERS Safety Report 20062718 (Version 1)
Quarter: 2021Q4

REPORT INFORMATION
  Report Type: Report from Study
  Country: US (occurrence: US)
  Receive Date: 20211112
  Receipt Date: 20211112
  Transmission Date: 20220303
  Serious: No
  Sender: FDA-Public Use
  Company Number: US-PHARMACOVIGILANCE-US-KAD-21-00006

PATIENT

DRUGS (1)
  1. REZUROCK [Suspect]
     Active Substance: BELUMOSUDIL
     Indication: Graft versus host disease
     Dosage: 200 MILLIGRAM, QD
     Route: 048
     Dates: start: 20210826

REACTIONS (5)
  - Headache [Unknown]
  - Fatigue [Unknown]
  - Lip pain [Recovered/Resolved]
  - Gastrooesophageal reflux disease [Unknown]
  - Decreased activity [Unknown]

NARRATIVE: CASE EVENT DATE: 20210826
